FAERS Safety Report 17313408 (Version 1)
Quarter: 2020Q1

REPORT INFORMATION
  Report Type: Spontaneous
  Country: DK (occurrence: DK)
  Receive Date: 20200124
  Receipt Date: 20200124
  Transmission Date: 20200409
  Serious: Yes (Hospitalization)
  Sender: FDA-Public Use
  Company Number: DK-TEVA-2020-DK-1171925

PATIENT
  Age: 78 Year
  Sex: Female

DRUGS (5)
  1. CENTYL MED KALIUMKLORID [Concomitant]
     Active Substance: BENDROFLUMETHIAZIDE\POTASSIUM CHLORIDE
     Indication: HYPERTENSION
     Dosage: STRENGTH: 2.5 + 573 MG 1 DOSAGE FORMS
     Route: 048
     Dates: start: 201504
  2. IBUPROFEN ^TEVA^ [Suspect]
     Active Substance: IBUPROFEN
     Indication: PAIN
     Dosage: STRENGTH: 400 MG
     Route: 048
     Dates: start: 20191213, end: 20191222
  3. ELTROXIN [Concomitant]
     Active Substance: LEVOTHYROXINE
     Indication: HYPOTHYROIDISM
     Dosage: STRENGTH: 100 MICROGRAMS
     Route: 048
     Dates: start: 20140623
  4. CALCIUM OG D-VITAMIN [Concomitant]
     Indication: MINERAL SUPPLEMENTATION
     Dosage: STYRKE: 400MG + 19MIKROGRAM
     Route: 048
     Dates: start: 201608
  5. PANODIL [Concomitant]
     Active Substance: ACETAMINOPHEN
     Indication: PAIN
     Dosage: STRENGTH: 665 MG?MAXIMUM 3 TIMES DAILY
     Route: 048
     Dates: start: 20190923

REACTIONS (5)
  - Dizziness [Unknown]
  - Anaemia [Not Recovered/Not Resolved]
  - Renal impairment [Recovered/Resolved]
  - Haemoglobin decreased [Not Recovered/Not Resolved]
  - Blood creatine increased [Recovered/Resolved]

NARRATIVE: CASE EVENT DATE: 20191222
